FAERS Safety Report 8158406-3 (Version None)
Quarter: 2012Q1

REPORT INFORMATION
  Report Type: 
  Country: None (occurrence: None)
  Receive Date: 20120223
  Receipt Date: 20120215
  Transmission Date: 20120608
  Serious: Yes (Other)
  Sender: FDA-Public Use
  Company Number: US-BAYER-2011-023233

PATIENT
  Age: 48 Year
  Sex: Female
  Weight: 70.295 kg

DRUGS (5)
  1. MECLIZINE [Concomitant]
     Indication: DIZZINESS
     Dosage: UNK
     Route: 048
     Dates: start: 20040601
  2. FIORICET [Concomitant]
     Indication: HEADACHE
     Dosage: UNK
     Route: 048
     Dates: start: 20040601
  3. MECLIZINE [Concomitant]
     Indication: NAUSEA
  4. YASMIN [Suspect]
     Indication: CONTRACEPTION
     Dosage: UNK
     Route: 048
     Dates: start: 20040601, end: 20040701
  5. PONSTEL [Concomitant]
     Dosage: UNK
     Route: 048
     Dates: start: 20040526

REACTIONS (3)
  - CEREBELLAR INFARCTION [None]
  - INJURY [None]
  - CEREBROVASCULAR ACCIDENT [None]
